FAERS Safety Report 4734886-8 (Version None)
Quarter: 2005Q3

REPORT INFORMATION
  Report Type: 
  Country: None (occurrence: None)
  Receive Date: 20050804
  Receipt Date: 20050726
  Transmission Date: 20060218
  Serious: Yes (Hospitalization)
  Sender: FDA-Public Use
  Company Number: PHBS2005BR10960

PATIENT
  Age: 18 Year
  Sex: Male

DRUGS (1)
  1. CODATEN [Suspect]
     Indication: MUSCULOSKELETAL DISCOMFORT
     Route: 048
     Dates: start: 20050723, end: 20050725

REACTIONS (4)
  - BLOOD PRESSURE DECREASED [None]
  - FEELING COLD [None]
  - TACHYCARDIA [None]
  - VOMITING [None]
